FAERS Safety Report 5830866-X (Version None)
Quarter: 2008Q3

REPORT INFORMATION
  Report Type: 
  Country: None (occurrence: None)
  Receive Date: 20080801
  Receipt Date: 20080730
  Transmission Date: 20090109
  Serious: Yes (Hospitalization, Other)
  Sender: FDA-Public Use
  Company Number: US-ABBOTT-08P-163-0462186-00

PATIENT
  Sex: Female

DRUGS (5)
  1. LUPRON DEPOT [Suspect]
     Indication: PELVIC PAIN
     Route: 030
     Dates: start: 20080305, end: 20080305
  2. LUPRON DEPOT [Suspect]
     Route: 030
     Dates: start: 20070101, end: 20080201
  3. FLUOXETINE [Concomitant]
     Indication: DEPRESSION
  4. VALPROATE SODIUM [Concomitant]
     Indication: BIPOLAR DISORDER
  5. OLANZAPINE [Concomitant]
     Indication: BIPOLAR DISORDER

REACTIONS (4)
  - BLEPHAROSPASM [None]
  - CONVERSION DISORDER [None]
  - DYSARTHRIA [None]
  - HYPOAESTHESIA [None]
